FAERS Safety Report 9539299 (Version 1)
Quarter: 2013Q3

REPORT INFORMATION
  Report Type: Spontaneous
  Country: US (occurrence: None)
  Receive Date: 20130916
  Receipt Date: 20130916
  Transmission Date: 20140515
  Serious: Yes (Other)
  Sender: FDA-Public Use
  Company Number: 97573

PATIENT
  Age: 13 Year
  Sex: Male

DRUGS (1)
  1. BENZOYL PEROXIDE [Suspect]
     Indication: ACNE
     Route: 061
     Dates: start: 20130815

REACTIONS (4)
  - Swelling face [None]
  - Lip swelling [None]
  - Skin discolouration [None]
  - Expired drug administered [None]
